FAERS Safety Report 7737930-9 (Version None)
Quarter: 2011Q3

REPORT INFORMATION
  Report Type: 
  Country: None (occurrence: None)
  Receive Date: 20110908
  Receipt Date: 20110906
  Transmission Date: 20111222
  Serious: Yes (Hospitalization, Other)
  Sender: FDA-Public Use
  Company Number: PHEH2009US16586

PATIENT
  Sex: Female
  Weight: 44.1 kg

DRUGS (7)
  1. EXJADE [Suspect]
     Indication: LYMPHOCYTIC LEUKAEMIA
     Dosage: 1000MG, DAILY
     Route: 048
     Dates: start: 20091215, end: 20091223
  2. EXJADE [Suspect]
     Indication: IRON OVERLOAD
     Dosage: UNK UKN, UNK
  3. CHEMOTHERAPEUTICS NOS [Concomitant]
     Dosage: UNK UKN, UNK
     Route: 065
  4. CALCIUM CARBONATE [Concomitant]
     Dosage: UNK UKN, UNK
     Route: 048
     Dates: start: 20090901, end: 20101201
  5. OXYCODONE HCL [Concomitant]
     Indication: PAIN
     Dosage: 5 MG,
     Route: 048
     Dates: start: 20090901, end: 20100801
  6. BACTRIM [Concomitant]
     Indication: ANTIFUNGAL PROPHYLAXIS
     Dosage: 80 MG, UNK
     Route: 048
     Dates: start: 20090901, end: 20100801
  7. ACYCLOVIR [Concomitant]
     Dosage: 300 MG, TID
     Route: 048
     Dates: start: 20090901, end: 20100801

REACTIONS (2)
  - LEUKAEMIA RECURRENT [None]
  - NONSPECIFIC REACTION [None]
